FAERS Safety Report 24551453 (Version 3)
Quarter: 2024Q4

REPORT INFORMATION
  Report Type: Spontaneous
  Country: US (occurrence: US)
  Receive Date: 20241026
  Receipt Date: 20241221
  Transmission Date: 20250114
  Serious: No
  Sender: ABBVIE
  Company Number: US-ABBVIE-5974072

PATIENT
  Age: 73 Year
  Sex: Male

DRUGS (1)
  1. SKYRIZI [Suspect]
     Active Substance: RISANKIZUMAB-RZAA
     Indication: Crohn^s disease
     Dosage: UNKNOWN
     Route: 058
     Dates: start: 20240515

REACTIONS (5)
  - Muscular weakness [Unknown]
  - Red blood cell count decreased [Not Recovered/Not Resolved]
  - Anaemia [Unknown]
  - Musculoskeletal discomfort [Not Recovered/Not Resolved]
  - Muscle disorder [Unknown]

NARRATIVE: CASE EVENT DATE: 20240815
